FAERS Safety Report 10047646 (Version 1)
Quarter: 2014Q1

REPORT INFORMATION
  Report Type: Spontaneous
  Country: FR (occurrence: FR)
  Receive Date: 20140331
  Receipt Date: 20140331
  Transmission Date: 20141002
  Serious: Yes (Hospitalization, Other)
  Sender: FDA-Public Use
  Company Number: FR-PFIZER INC-2014085693

PATIENT
  Age: 57 Year
  Sex: Female

DRUGS (2)
  1. LYRICA [Suspect]
     Indication: NEURALGIA
     Dosage: 25 MG, DAILY
     Dates: start: 201006, end: 20121226
  2. MICARDIS [Concomitant]
     Dosage: UNK

REACTIONS (5)
  - Paralysis [Unknown]
  - Depression [Unknown]
  - Aggression [Unknown]
  - Movement disorder [Unknown]
  - Malaise [Unknown]
